FAERS Safety Report 9900702 (Version 2)
Quarter: 2015Q4

REPORT INFORMATION
  Report Type: Report from Study
  Country: US (occurrence: US)
  Receive Date: 20140217
  Receipt Date: 20151126
  Transmission Date: 20160305
  Serious: Yes (Other)
  Sender: FDA-Public Use
  Company Number: US-ROCHE-1346625

PATIENT
  Sex: Male

DRUGS (5)
  1. LUTEIN [Concomitant]
     Active Substance: LUTEIN
  2. DEXAMETHASONE. [Concomitant]
     Active Substance: DEXAMETHASONE
  3. AVASTIN [Suspect]
     Active Substance: BEVACIZUMAB
     Indication: NEOVASCULAR AGE-RELATED MACULAR DEGENERATION
  4. VITAMIN B12 [Concomitant]
     Active Substance: CYANOCOBALAMIN
  5. AVASTIN [Suspect]
     Active Substance: BEVACIZUMAB
     Indication: NEOVASCULAR AGE-RELATED MACULAR DEGENERATION
     Dosage: LEFT EYE
     Route: 050

REACTIONS (4)
  - Metamorphopsia [Unknown]
  - Macular oedema [Unknown]
  - Off label use [Unknown]
  - Vision blurred [Unknown]
